FAERS Safety Report 17629059 (Version 1)
Quarter: 2020Q2

REPORT INFORMATION
  Report Type: Spontaneous
  Country: US (occurrence: US)
  Receive Date: 20200406
  Receipt Date: 20200406
  Transmission Date: 20200713
  Serious: No
  Sender: FDA-Public Use
  Company Number: US-ALLERGAN-1934134US

PATIENT
  Sex: Female

DRUGS (4)
  1. ORAL MEDICATION FOR ULCERATIVE COLITIS [Concomitant]
     Route: 048
  2. CANASA [Suspect]
     Active Substance: MESALAMINE
     Dosage: 1000 MG, QD
     Route: 054
  3. CANASA [Suspect]
     Active Substance: MESALAMINE
     Indication: COLITIS ULCERATIVE
     Dosage: 1000 MG, QD
     Route: 054
  4. CANASA [Suspect]
     Active Substance: MESALAMINE
     Dosage: 1000 MG, QD
     Route: 054

REACTIONS (5)
  - Incorrect dose administered by product [Unknown]
  - Product dispensing issue [Unknown]
  - Abdominal discomfort [Not Recovered/Not Resolved]
  - Haematochezia [Not Recovered/Not Resolved]
  - Product quality issue [Unknown]
